FAERS Safety Report 8840491 (Version 1)
Quarter: 2012Q4

REPORT INFORMATION
  Report Type: 
  Country: ES (occurrence: ES)
  Receive Date: 20121015
  Receipt Date: 20121015
  Transmission Date: 20130627
  Serious: No
  Sender: FDA-Public Use
  Company Number: ES-ELI_LILLY_AND_COMPANY-ES201210000936

PATIENT
  Age: 46 Year
  Sex: Female
  Weight: 110 kg

DRUGS (1)
  1. CYMBALTA [Suspect]
     Indication: DEPRESSION
     Dosage: 60 Unk/Unk
     Dates: start: 20120715

REACTIONS (1)
  - Transaminases increased [Not Recovered/Not Resolved]
